FAERS Safety Report 17161290 (Version 1)
Quarter: 2019Q4

REPORT INFORMATION
  Report Type: Report from Study
  Country: DE (occurrence: DE)
  Receive Date: 20191216
  Receipt Date: 20191216
  Transmission Date: 20200122
  Serious: Yes (Hospitalization)
  Sender: FDA-Public Use
  Company Number: DE-BIOGEN-2019BI00816218

PATIENT
  Sex: Female

DRUGS (1)
  1. TECFIDERA [Suspect]
     Active Substance: DIMETHYL FUMARATE
     Indication: MULTIPLE SCLEROSIS
     Route: 048
     Dates: start: 20140313

REACTIONS (5)
  - Poor quality sleep [Not Recovered/Not Resolved]
  - Fall [Recovered/Resolved]
  - Hip fracture [Recovered/Resolved]
  - Lower limb fracture [Recovered/Resolved]
  - Osteoporosis [Not Recovered/Not Resolved]
